FAERS Safety Report 4703190-6 (Version None)
Quarter: 2005Q2

REPORT INFORMATION
  Report Type: 
  Country: None (occurrence: None)
  Receive Date: 20050629
  Receipt Date: 20050601
  Transmission Date: 20051028
  Serious: Yes (Other)
  Sender: FDA-Public Use
  Company Number: 2005AP03154

PATIENT
  Age: 70 Year
  Sex: Male

DRUGS (13)
  1. CARBOCAIN [Suspect]
     Indication: EPIDURAL ANAESTHESIA
     Route: 008
     Dates: start: 20050525, end: 20050525
  2. DIPRIVAN [Interacting]
     Indication: INDUCTION OF ANAESTHESIA
     Route: 042
     Dates: start: 20050525, end: 20050525
  3. TOLEDOMIN [Interacting]
     Indication: BIPOLAR I DISORDER
     Route: 048
  4. ATROPINE SULFATE [Concomitant]
     Route: 030
     Dates: start: 20050525, end: 20050525
  5. XYLOCAINE W/ EPINEPHRINE [Concomitant]
     Indication: EPIDURAL ANAESTHESIA
     Route: 008
     Dates: start: 20050525, end: 20050525
  6. MUSCULAX [Concomitant]
     Indication: HYPOTONIA
     Dates: start: 20050525, end: 20050525
  7. LAUGHING GAS [Concomitant]
     Indication: MAINTENANCE OF ANAESTHESIA
     Route: 055
     Dates: start: 20050525, end: 20050525
  8. SEVOFLURANE [Concomitant]
     Indication: MAINTENANCE OF ANAESTHESIA
     Route: 055
     Dates: start: 20050525, end: 20050525
  9. MORPHINE [Concomitant]
     Indication: ANALGESIC THERAPY
     Route: 008
     Dates: start: 20050525, end: 20050525
  10. HALCION [Concomitant]
     Indication: SEDATION
     Route: 048
     Dates: start: 20050525, end: 20050525
  11. LIMAS [Concomitant]
     Indication: BIPOLAR I DISORDER
     Route: 048
  12. ALPRAZOLAM [Concomitant]
     Indication: BIPOLAR I DISORDER
     Route: 048
  13. ROHYPNOL [Concomitant]
     Indication: BIPOLAR I DISORDER
     Route: 048

REACTIONS (2)
  - DRUG INTERACTION [None]
  - HYPOTENSION [None]
